FAERS Safety Report 14656725 (Version 1)
Quarter: 2018Q1

REPORT INFORMATION
  Report Type: Spontaneous
  Country: US (occurrence: US)
  Receive Date: 20180319
  Receipt Date: 20180319
  Transmission Date: 20180509
  Serious: No
  Sender: FDA-Public Use
  Company Number: US-SA-2017SA034944

PATIENT
  Age: 55 Year
  Sex: Male

DRUGS (4)
  1. NASACORT AQ [Suspect]
     Active Substance: TRIAMCINOLONE ACETONIDE
     Indication: EYE PRURITUS
     Dosage: IN FORM ONLY NASAL SPRAY IS MENTIONED,DOSAGE 0.055 MG?PUFFS
     Route: 065
     Dates: end: 20170202
  2. NASACORT AQ [Suspect]
     Active Substance: TRIAMCINOLONE ACETONIDE
     Indication: EYE DISORDER
     Dosage: IN FORM ONLY NASAL SPRAY IS MENTIONED,DOSAGE 0.055 MG?PUFFS
     Route: 065
     Dates: end: 20170202
  3. NASACORT AQ [Suspect]
     Active Substance: TRIAMCINOLONE ACETONIDE
     Indication: RHINORRHOEA
     Dosage: IN FORM ONLY NASAL SPRAY IS MENTIONED,DOSAGE 0.055 MG?PUFFS
     Route: 065
     Dates: end: 20170202
  4. NASACORT AQ [Suspect]
     Active Substance: TRIAMCINOLONE ACETONIDE
     Indication: THROAT IRRITATION
     Dosage: IN FORM ONLY NASAL SPRAY IS MENTIONED,DOSAGE 0.055 MG?PUFFS
     Route: 065
     Dates: end: 20170202

REACTIONS (1)
  - Drug ineffective [Unknown]
